FAERS Safety Report 14987428 (Version 1)
Quarter: 2018Q2

REPORT INFORMATION
  Report Type: Spontaneous
  Country: US (occurrence: US)
  Receive Date: 20180518
  Receipt Date: 20180518
  Transmission Date: 20180711
  Serious: Yes (Other)
  Sender: FDA-Public Use
  Company Number: None

PATIENT
  Sex: Male
  Weight: 76.5 kg

DRUGS (1)
  1. BUMETANIDE. [Suspect]
     Active Substance: BUMETANIDE
     Indication: OEDEMA
     Route: 048
     Dates: start: 20180514, end: 20180518

REACTIONS (2)
  - Product substitution issue [None]
  - Fluid retention [None]
